FAERS Safety Report 9260165 (Version 1)
Quarter: 2013Q2

REPORT INFORMATION
  Report Type: Spontaneous
  Country: US (occurrence: US)
  Receive Date: 20130429
  Receipt Date: 20130429
  Transmission Date: 20140414
  Serious: No
  Sender: FDA-Public Use
  Company Number: US-PFIZER INC-2013131426

PATIENT
  Age: 34 Year
  Sex: Male
  Weight: 72.56 kg

DRUGS (5)
  1. NEURONTIN [Suspect]
     Indication: NEURALGIA
     Dosage: 300 MG, 2X/DAY
     Route: 048
  2. EDARBI [Concomitant]
     Indication: HYPERTENSION
     Dosage: 80 MG, 1X/DAY
  3. TIZANIDINE [Concomitant]
     Indication: MUSCLE RELAXANT THERAPY
     Dosage: 4 MG, 2X/DAY
     Route: 048
  4. METHADONE [Concomitant]
     Indication: PAIN
     Dosage: 10 MG, 4X/DAY
  5. OXYCODONE [Concomitant]
     Indication: PAIN
     Dosage: 30 MG, 4X/DAY

REACTIONS (2)
  - Dry mouth [Unknown]
  - Drug ineffective [Unknown]
